FAERS Safety Report 14518921 (Version 1)
Quarter: 2018Q1

REPORT INFORMATION
  Report Type: Spontaneous
  Country: US (occurrence: US)
  Receive Date: 20180209
  Receipt Date: 20180209
  Transmission Date: 20180509
  Serious: Yes (Hospitalization)
  Sender: FDA-Public Use
  Company Number: None

PATIENT
  Age: 6 Year
  Sex: Male
  Weight: 22.5 kg

DRUGS (1)
  1. ADVATE [Suspect]
     Active Substance: ANTIHEMOPHILIC FACTOR, HUMAN RECOMBINANT
     Indication: FACTOR VIII DEFICIENCY
     Route: 040
     Dates: start: 20180129

REACTIONS (3)
  - Hypersensitivity [None]
  - Arthritis [None]
  - Rash [None]

NARRATIVE: CASE EVENT DATE: 20180131
